FAERS Safety Report 7367617-6 (Version None)
Quarter: 2011Q1

REPORT INFORMATION
  Report Type: 
  Country: None (occurrence: None)
  Receive Date: 20110322
  Receipt Date: 20110307
  Transmission Date: 20110831
  Serious: Yes (Other)
  Sender: FDA-Public Use
  Company Number: US-PFIZER INC-2011061211

PATIENT
  Sex: Female

DRUGS (19)
  1. KLONOPIN [Suspect]
     Indication: RESTLESS LEGS SYNDROME
     Dosage: 0.5 MG, EACH EVENING
  2. HYDROCHLOROTHIAZIDE [Suspect]
     Indication: OEDEMA PERIPHERAL
     Dosage: 25 MG, EACH MORNING
  3. DURAGESIC-50 [Suspect]
     Indication: BACK PAIN
     Dosage: 75 UG/HR, (1 IN 3 DAY)
     Route: 062
  4. CYMBALTA [Suspect]
     Indication: NEURALGIA
     Dosage: 60 MG, EACH MORNING
  5. SYNTHROID [Suspect]
     Indication: HYPOTHYROIDISM
     Dosage: 0.112 MG, EACH MORNING
  6. CALCIUM CITRATE + VITAMIN D [Suspect]
     Indication: OSTEOPOROSIS
     Dosage: 630 MG, 3X/DAY
  7. LIPITOR [Suspect]
     Indication: HYPERCHOLESTEROLAEMIA
     Dosage: 40 MG, EACH EVENING
  8. ACIPHEX [Suspect]
     Indication: GASTROOESOPHAGEAL REFLUX DISEASE
     Dosage: 20 MG, EACH MORNING
  9. WELLBUTRIN XL [Suspect]
     Indication: DEPRESSION
     Dosage: 300 MG, EACH MORNING
  10. CYMBALTA [Suspect]
     Indication: DEPRESSION
  11. MULTIPLE VITAMINS [Suspect]
     Indication: GENERAL PHYSICAL CONDITION
     Dosage: 1 TABLET, EACH MORNING
  12. CLONIDINE [Suspect]
     Indication: NIGHT SWEATS
     Dosage: 0.1 MG, EACH EVENING
  13. LOMOTIL [Suspect]
     Indication: COLITIS
     Dosage: 0.025 MG/2.5 MG, UNK
  14. LYRICA [Suspect]
     Indication: NEURALGIA
     Dosage: 75 MG, 2X/DAY
  15. NOLVADEX [Suspect]
     Indication: BREAST CANCER
     Dosage: 20 MG, EACH MORNING
  16. MOBIC [Suspect]
     Indication: FIBROMYALGIA
     Dosage: 7.5 MG, TWICE DAILY AS NEEDED
  17. FLEXERIL [Suspect]
     Indication: RESTLESS LEGS SYNDROME
     Dosage: 20 MG, 1X/DAY EACH EVENING
  18. CLONIDINE [Suspect]
     Indication: HOT FLUSH
  19. DILAUDID [Suspect]
     Indication: BACK PAIN
     Dosage: 4 MG, FOUR TIMES A DAY AS NEEDED

REACTIONS (2)
  - FALL [None]
  - ORTHOSTATIC HYPOTENSION [None]
